FAERS Safety Report 16374651 (Version 1)
Quarter: 2019Q2

REPORT INFORMATION
  Report Type: Spontaneous
  Country: US (occurrence: US)
  Receive Date: 20190530
  Receipt Date: 20190530
  Transmission Date: 20190711
  Serious: Yes (Other)
  Sender: FDA-Public Use
  Company Number: US-BEH-2019102970

PATIENT
  Age: 49 Year
  Sex: Female

DRUGS (1)
  1. HAEGARDA [Suspect]
     Active Substance: HUMAN C1-ESTERASE INHIBITOR
     Indication: PRODUCT USED FOR UNKNOWN INDICATION
     Dosage: 4000 IU, BIW
     Route: 058
     Dates: start: 201805

REACTIONS (4)
  - Tooth disorder [Unknown]
  - Abdominal distension [Unknown]
  - Swelling [Unknown]
  - Swelling [Unknown]

NARRATIVE: CASE EVENT DATE: 201905
